FAERS Safety Report 19257741 (Version 1)
Quarter: 2021Q2

REPORT INFORMATION
  Report Type: Other
  Country: BE (occurrence: BE)
  Receive Date: 20210514
  Receipt Date: 20210514
  Transmission Date: 20210717
  Serious: Yes (Other)
  Sender: FDA-Public Use
  Company Number: BE-ROCHE-2824699

PATIENT
  Age: 72 Year
  Sex: Female

DRUGS (4)
  1. TOCILIZUMAB. [Suspect]
     Active Substance: TOCILIZUMAB
     Indication: GIANT CELL ARTERITIS
     Route: 042
  2. METHYLPREDNISOLONE. [Concomitant]
     Active Substance: METHYLPREDNISOLONE
     Indication: GIANT CELL ARTERITIS
     Dosage: FOR FIVE DAYS
     Route: 042
  3. ISONIAZIDE [Concomitant]
     Active Substance: ISONIAZID
     Route: 065
  4. METHYLPREDNISOLONE. [Concomitant]
     Active Substance: METHYLPREDNISOLONE
     Dosage: TAPERED BY 4 MG EVERY 14 DAYS
     Route: 048

REACTIONS (3)
  - Hepatotoxicity [Recovered/Resolved]
  - Pulmonary granuloma [Recovered/Resolved]
  - Hepatic cytolysis [Recovered/Resolved]
